FAERS Safety Report 25253757 (Version 2)
Quarter: 2025Q2

REPORT INFORMATION
  Report Type: Spontaneous
  Country: ES (occurrence: ES)
  Receive Date: 20250430
  Receipt Date: 20250516
  Transmission Date: 20250716
  Serious: Yes (Congenital Anomaly, Other)
  Sender: AUROBINDO
  Company Number: ES-UCBSA-2025021100

PATIENT
  Sex: Female

DRUGS (3)
  1. LEVETIRACETAM [Suspect]
     Active Substance: LEVETIRACETAM
     Indication: Sedation
     Route: 064
  2. CEFTRIAXONE [Concomitant]
     Active Substance: CEFTRIAXONE
     Indication: Product used for unknown indication
     Route: 064
  3. ACYCLOVIR [Concomitant]
     Active Substance: ACYCLOVIR
     Indication: Product used for unknown indication
     Dosage: 750 MILLIGRAM, 3 TIMES A DAY (750 MILLIGRAM PER 8 HOUR)
     Route: 064

REACTIONS (5)
  - Congenital choroid plexus cyst [Unknown]
  - Single umbilical artery [Unknown]
  - Low birth weight baby [Unknown]
  - Small for dates baby [Unknown]
  - Maternal exposure during pregnancy [Unknown]
